FAERS Safety Report 25008307 (Version 1)
Quarter: 2025Q1

REPORT INFORMATION
  Report Type: Spontaneous
  Country: US (occurrence: US)
  Receive Date: 20250225
  Receipt Date: 20250225
  Transmission Date: 20250409
  Serious: No
  Sender: XELLIA PHARMACEUTICALS
  Company Number: US-Axellia-005278

PATIENT
  Sex: Male

DRUGS (17)
  1. VANCOMYCIN [Suspect]
     Active Substance: VANCOMYCIN
     Indication: Product used for unknown indication
  2. AZACITIDINE [Concomitant]
     Active Substance: AZACITIDINE
  3. TYLENOL [Concomitant]
     Active Substance: ACETAMINOPHEN
  4. PROVENTIL HFA [Concomitant]
     Active Substance: ALBUTEROL SULFATE
  5. VENTOLIN HFA [Concomitant]
     Active Substance: ALBUTEROL SULFATE
  6. ZYLOPRIM [Concomitant]
     Active Substance: ALLOPURINOL
  7. LEXAPRO [Concomitant]
     Active Substance: ESCITALOPRAM OXALATE
  8. TAMBOCOR [Concomitant]
     Active Substance: FLECAINIDE ACETATE
  9. FOLVITE [Concomitant]
     Active Substance: FOLIC ACID
  10. TOPROL XL [Concomitant]
     Active Substance: METOPROLOL SUCCINATE
  11. NAPROSYN [Concomitant]
     Active Substance: NAPROXEN
  12. PRILOSEC [Concomitant]
     Active Substance: OMEPRAZOLE MAGNESIUM
  13. XARELTO [Concomitant]
     Active Substance: RIVAROXABAN
  14. FLOMAX [Concomitant]
     Active Substance: TAMSULOSIN HYDROCHLORIDE
  15. ULTRAM [Concomitant]
     Active Substance: TRAMADOL HYDROCHLORIDE
  16. VALTREX [Concomitant]
     Active Substance: VALACYCLOVIR HYDROCHLORIDE
  17. VENETOCLAX [Concomitant]
     Active Substance: VENETOCLAX

REACTIONS (1)
  - Flushing [Unknown]
